FAERS Safety Report 6836841-0 (Version None)
Quarter: 2010Q3

REPORT INFORMATION
  Report Type: 
  Country: None (occurrence: None)
  Receive Date: 20100713
  Receipt Date: 20070618
  Transmission Date: 20110219
  Serious: No
  Sender: FDA-Public Use
  Company Number: US-PFIZER INC-2007036210

PATIENT
  Sex: Female
  Weight: 88.636 kg

DRUGS (3)
  1. CHANTIX [Suspect]
     Indication: SMOKING CESSATION THERAPY
     Dates: start: 20070430, end: 20070501
  2. ZOLOFT [Concomitant]
  3. TYLENOL [Concomitant]

REACTIONS (2)
  - PRURITUS [None]
  - URTICARIA [None]
